FAERS Safety Report 16365449 (Version 2)
Quarter: 2019Q2

REPORT INFORMATION
  Report Type: Report from Study
  Country: GT (occurrence: GT)
  Receive Date: 20190529
  Receipt Date: 20190626
  Transmission Date: 20190711
  Serious: Yes (Other)
  Sender: FDA-Public Use
  Company Number: PHHY2019GT121417

PATIENT
  Age: 65 Year
  Sex: Male

DRUGS (2)
  1. EXFORGE HCT [Suspect]
     Active Substance: AMLODIPINE BESYLATE\HYDROCHLOROTHIAZIDE\VALSARTAN
     Indication: HYPERTENSION
     Dosage: (AMLODIPINE 10 MG, HYDROCHLOROTHIAZIDE 25 MG, VALSARTAN 320 MG)
     Route: 065
  2. EXFORGE [Suspect]
     Active Substance: AMLODIPINE BESYLATE\VALSARTAN
     Indication: HYPERTENSION
     Dosage: UNK
     Route: 065
     Dates: start: 20190513

REACTIONS (9)
  - Renal injury [Unknown]
  - Loss of consciousness [Recovered/Resolved]
  - Cerebrovascular accident [Recovering/Resolving]
  - Malaise [Unknown]
  - Blood pressure abnormal [Unknown]
  - Renal failure [Recovering/Resolving]
  - Hypertension [Recovering/Resolving]
  - Cardiac valve disease [Recovering/Resolving]
  - Diabetic metabolic decompensation [Recovering/Resolving]
